FAERS Safety Report 23131151 (Version 1)
Quarter: 2023Q4

REPORT INFORMATION
  Report Type: Spontaneous
  Country: US (occurrence: None)
  Receive Date: 20231030
  Receipt Date: 20231030
  Transmission Date: 20240109
  Serious: Yes (unspecified)
  Sender: FDA-Public Use
  Company Number: None

PATIENT
  Age: 65 Year
  Sex: Female
  Weight: 66.6 kg

DRUGS (13)
  1. OLOPATADINE HYDROCHLORIDE OPHTHALMIC SOLUTION 0.1 % [Suspect]
     Active Substance: OLOPATADINE HYDROCHLORIDE
     Indication: Eye pruritus
     Dosage: OTHER QUANTITY : 1 DROP(S);?FREQUENCY : EVERY 8 HOURS;?
     Route: 047
     Dates: start: 20231023, end: 20231023
  2. UBRELVY [Concomitant]
     Active Substance: UBROGEPANT
  3. FIORICET [Concomitant]
     Active Substance: ACETAMINOPHEN\BUTALBITAL\CAFFEINE
  4. ADDERALL [Concomitant]
     Active Substance: AMPHETAMINE ASPARTATE\AMPHETAMINE SULFATE\DEXTROAMPHETAMINE SACCHARATE\DEXTROAMPHETAMINE SULFATE
  5. FLONASE [Concomitant]
     Active Substance: FLUTICASONE PROPIONATE
  6. CLARITIN [Concomitant]
     Active Substance: LORATADINE
  7. CALCIUM [Concomitant]
     Active Substance: CALCIUM
  8. VITAMIN B2 [Concomitant]
     Active Substance: RIBOFLAVIN
  9. BIOTIN [Concomitant]
     Active Substance: BIOTIN
  10. MAGNESIUM [Concomitant]
     Active Substance: MAGNESIUM
  11. VITAMIN D [Concomitant]
     Active Substance: VITAMIN D NOS
  12. COENZYME Q10 [Concomitant]
     Active Substance: DIETARY SUPPLEMENT\UBIDECARENONE
  13. IBUPROFEN [Concomitant]
     Active Substance: IBUPROFEN

REACTIONS (3)
  - Hordeolum [None]
  - Cellulitis [None]
  - Infection [None]

NARRATIVE: CASE EVENT DATE: 20231025
